FAERS Safety Report 12887793 (Version 1)
Quarter: 2016Q4

REPORT INFORMATION
  Report Type: Spontaneous
  Country: US (occurrence: US)
  Receive Date: 20161027
  Receipt Date: 20161027
  Transmission Date: 20170207
  Serious: No
  Sender: FDA-Public Use
  Company Number: US-BAXTER-2016BAX051848

PATIENT
  Sex: Male

DRUGS (2)
  1. 0.9% SODIUM CHLORIDE INJECTION [Suspect]
     Active Substance: SODIUM CHLORIDE
     Indication: MEDICATION DILUTION
     Route: 065
  2. PIPERACILLIN [Suspect]
     Active Substance: PIPERACILLIN
     Indication: ANTIBIOTIC THERAPY
     Route: 065

REACTIONS (1)
  - Diarrhoea [Unknown]
